FAERS Safety Report 21967315 (Version 4)
Quarter: 2024Q4

REPORT INFORMATION
  Report Type: Spontaneous
  Country: GB (occurrence: DE)
  Receive Date: 20230208
  Receipt Date: 20241124
  Transmission Date: 20250114
  Serious: Yes (Other)
  Sender: ALEXION PHARMACEUTICALS
  Company Number: 2023A026298

PATIENT
  Age: 40 Year

DRUGS (22)
  1. ESOMEPRAZOLE SODIUM [Suspect]
     Active Substance: ESOMEPRAZOLE SODIUM
     Indication: Product used for unknown indication
     Dosage: 40 MG ADMINISTERED VIA THE VASCULAR ACCESS SITE ON THE 24-JAN-2023
     Route: 065
  2. ESOMEPRAZOLE SODIUM [Suspect]
     Active Substance: ESOMEPRAZOLE SODIUM
     Dosage: 40 MG ADMINISTERED VIA THE VASCULAR ACCESS SITE ON THE 24-JAN-2023
  3. ESOMEPRAZOLE SODIUM [Suspect]
     Active Substance: ESOMEPRAZOLE SODIUM
     Dosage: 40 MG ADMINISTERED VIA THE VASCULAR ACCESS SITE ON THE 24-JAN-2023
     Route: 065
  4. ESOMEPRAZOLE SODIUM [Suspect]
     Active Substance: ESOMEPRAZOLE SODIUM
     Dosage: 40 MG ADMINISTERED VIA THE VASCULAR ACCESS SITE ON THE 24-JAN-2023
  5. ONDANSETRON [Suspect]
     Active Substance: ONDANSETRON
     Indication: Product used for unknown indication
     Dosage: 40 MG ADMINISTERED VIA THE VASCULAR ACCESS SITE ON THE 24-JAN-2023
  6. ONDANSETRON [Suspect]
     Active Substance: ONDANSETRON
     Dosage: 40 MG ADMINISTERED VIA THE VASCULAR ACCESS SITE ON THE 24-JAN-2023
  7. ONDANSETRON [Suspect]
     Active Substance: ONDANSETRON
     Dosage: 40 MG ADMINISTERED VIA THE VASCULAR ACCESS SITE ON THE 24-JAN-2023
     Route: 065
  8. ONDANSETRON [Suspect]
     Active Substance: ONDANSETRON
     Dosage: 40 MG ADMINISTERED VIA THE VASCULAR ACCESS SITE ON THE 24-JAN-2023
     Route: 065
  9. ONDANSETRON [Suspect]
     Active Substance: ONDANSETRON
     Dosage: 4MG; ;ADMINISTERED VIA THE VASCULAR ACCESS SITE ON THE 24/1/23
  10. ONDANSETRON [Suspect]
     Active Substance: ONDANSETRON
     Dosage: 4MG; ;ADMINISTERED VIA THE VASCULAR ACCESS SITE ON THE 24/1/23
  11. FAMOTIDINE [Concomitant]
     Active Substance: FAMOTIDINE
     Indication: Product used for unknown indication
     Dosage: UNKNOWN
     Route: 065
  12. FAMOTIDINE [Concomitant]
     Active Substance: FAMOTIDINE
     Dosage: UNKNOWN
  13. FAMOTIDINE [Concomitant]
     Active Substance: FAMOTIDINE
     Dosage: UNK
  14. FAMOTIDINE [Concomitant]
     Active Substance: FAMOTIDINE
     Dosage: UNKNOWN
  15. LANSOPRAZOLE [Concomitant]
     Active Substance: LANSOPRAZOLE
     Indication: Product used for unknown indication
     Dosage: UNKNOWN
     Route: 065
  16. LANSOPRAZOLE [Concomitant]
     Active Substance: LANSOPRAZOLE
     Dosage: UNKNOWN
  17. LANSOPRAZOLE [Concomitant]
     Active Substance: LANSOPRAZOLE
     Dosage: UNK
  18. LANSOPRAZOLE [Concomitant]
     Active Substance: LANSOPRAZOLE
     Dosage: UNKNOWN
  19. NAPROXEN [Concomitant]
     Active Substance: NAPROXEN
     Indication: Product used for unknown indication
     Route: 065
  20. NAPROXEN [Concomitant]
     Active Substance: NAPROXEN
  21. NAPROXEN [Concomitant]
     Active Substance: NAPROXEN
     Dosage: UNK
  22. NAPROXEN [Concomitant]
     Active Substance: NAPROXEN
     Dosage: UNKNOWN

REACTIONS (2)
  - Extravasation [Recovered/Resolved]
  - Administration site inflammation [Unknown]
